FAERS Safety Report 13271265 (Version 1)
Quarter: 2017Q1

REPORT INFORMATION
  Report Type: Spontaneous
  Country: GB (occurrence: GB)
  Receive Date: 20170226
  Receipt Date: 20170226
  Transmission Date: 20170428
  Serious: Yes (Other)
  Sender: FDA-Public Use
  Company Number: GB-AMGEN-GBRSP2017029039

PATIENT
  Age: 50 Year
  Sex: Male

DRUGS (1)
  1. ENBREL [Suspect]
     Active Substance: ETANERCEPT
     Indication: PRODUCT USED FOR UNKNOWN INDICATION
     Dosage: 50 MG, UNK
     Route: 058
     Dates: end: 20170216

REACTIONS (6)
  - Eczema [Unknown]
  - Rash pruritic [Unknown]
  - Rash [Unknown]
  - Skin mass [Unknown]
  - Lower respiratory tract infection [Unknown]
  - Weight decreased [Unknown]
